FAERS Safety Report 10216528 (Version 3)
Quarter: 2015Q1

REPORT INFORMATION
  Report Type: Spontaneous
  Country: DK (occurrence: DK)
  Receive Date: 20140604
  Receipt Date: 20150210
  Transmission Date: 20150720
  Serious: Yes (Hospitalization, Other)
  Sender: FDA-Public Use
  Company Number: DK-PFIZER INC-2014151671

PATIENT
  Sex: Female
  Weight: 60 kg

DRUGS (16)
  1. LACTULOSE. [Suspect]
     Active Substance: LACTULOSE
     Indication: CONSTIPATION
     Dosage: 10 ML, 2X/DAY (667 MG/ML)
     Route: 048
     Dates: start: 20130302
  2. PANTOPRAZOLE [Suspect]
     Active Substance: PANTOPRAZOLE SODIUM
     Indication: GASTROOESOPHAGEAL REFLUX DISEASE
     Dosage: 40 MG, 1X/DAY
     Route: 048
     Dates: start: 20130302
  3. ELTROXIN [Suspect]
     Active Substance: LEVOTHYROXINE
     Indication: MYXOEDEMA
     Dosage: 50 UG, 1X/DAY
     Route: 048
     Dates: start: 20120921
  4. NITROFURANTOIN ^DAK^ [Suspect]
     Active Substance: NITROFURANTOIN
     Indication: PROPHYLAXIS URINARY TRACT INFECTION
     Dosage: 50 MG, 1X/DAY
     Route: 048
     Dates: start: 20120921
  5. MULTIVITAMINS [Concomitant]
     Active Substance: VITAMINS
     Dosage: UNK
     Dates: start: 20130121
  6. SERENASE [Suspect]
     Active Substance: HALOPERIDOL
     Indication: MENTAL DISORDER
     Dosage: 4 MG, 3X/DAY
     Route: 048
     Dates: start: 20120921
  7. ABILIFY [Suspect]
     Active Substance: ARIPIPRAZOLE
     Indication: SCHIZOPHRENIA
     Dosage: 10 MG, 1X/DAY
     Route: 048
     Dates: start: 20130217, end: 20130317
  8. PERSANTIN RETARD [Suspect]
     Active Substance: DIPYRIDAMOLE
     Indication: THROMBOSIS PROPHYLAXIS
     Dosage: 200 MG, 2X/DAY
     Route: 048
     Dates: start: 20120921
  9. PINEX [Suspect]
     Active Substance: ACETAMINOPHEN
     Indication: PAIN
     Dosage: 1 G, 4X/DAY
     Route: 048
     Dates: start: 20130302
  10. HJERTEMAGNYL [Suspect]
     Active Substance: ASPIRIN\MAGNESIUM OXIDE
     Indication: THROMBOSIS PROPHYLAXIS
     Dosage: 75 MG, 1X/DAY
     Route: 048
     Dates: start: 20120921
  11. TRADOLAN [Concomitant]
     Active Substance: TRAMADOL
     Dosage: UNK
     Dates: start: 20130303
  12. PENOMAX [Suspect]
     Active Substance: AMDINOCILLIN PIVOXIL HYDROCHLORIDE
     Indication: INFECTION
     Dosage: 400 MG, 3X/DAY
     Route: 048
     Dates: start: 20130306, end: 20130309
  13. IMOCLONE [Concomitant]
     Active Substance: ZOPICLONE
     Dosage: UNK
     Dates: start: 20120224
  14. CARDIOSTAD (LISINOPRIL) [Suspect]
     Active Substance: LISINOPRIL
     Indication: HYPERTENSION
     Dosage: 20 MG, 1X/DAY
     Route: 048
     Dates: start: 20120925
  15. OXABENZ [Suspect]
     Active Substance: OXAZEPAM
     Indication: RESTLESSNESS
     Dosage: 7.5 MG, DAILY
     Route: 048
     Dates: start: 20130302
  16. SIMVASTATIN ACTAVIS [Suspect]
     Active Substance: SIMVASTATIN
     Indication: CARDIOVASCULAR DISORDER
     Dosage: 40 MG, 1X/DAY
     Route: 048
     Dates: start: 20120921

REACTIONS (4)
  - Strawberry tongue [Not Recovered/Not Resolved]
  - Cerebral thrombosis [Not Recovered/Not Resolved]
  - Constipation [Not Recovered/Not Resolved]
  - Pneumonia [Not Recovered/Not Resolved]
